FAERS Safety Report 22519898 (Version 1)
Quarter: 2023Q2

REPORT INFORMATION
  Report Type: Report from Study
  Country: CA (occurrence: CA)
  Receive Date: 20230605
  Receipt Date: 20230605
  Transmission Date: 20230722
  Serious: Yes (Hospitalization)
  Sender: FDA-Public Use
  Company Number: CA-JNJFOC-20230332802

PATIENT
  Age: 17 Year
  Sex: Male
  Weight: 51 kg

DRUGS (2)
  1. REMICADE [Suspect]
     Active Substance: INFLIXIMAB
     Indication: Crohn^s disease
     Route: 042
     Dates: start: 20230327
  2. REMICADE [Suspect]
     Active Substance: INFLIXIMAB
     Dosage: PHYSICIAN WAS INCREASING DOSE TO 10 MG/KG AND RE-INDUCING AT WEEKS 1,4 THEN EVERY 4 WEEKS.
     Route: 042
     Dates: start: 2023

REACTIONS (3)
  - Crohn^s disease [Unknown]
  - Blood albumin abnormal [Unknown]
  - Off label use [Unknown]

NARRATIVE: CASE EVENT DATE: 20230327
